FAERS Safety Report 10217167 (Version 1)
Quarter: 2014Q2

REPORT INFORMATION
  Report Type: Spontaneous
  Country: CA (occurrence: CA)
  Receive Date: 20140604
  Receipt Date: 20140604
  Transmission Date: 20141212
  Serious: Yes (Other)
  Sender: FDA-Public Use
  Company Number: PHHY2014CA066905

PATIENT
  Age: 15 Year
  Sex: Female

DRUGS (6)
  1. THIAMAZOLE [Suspect]
     Indication: BASEDOW^S DISEASE
     Dosage: 15 MG, BID (0.6 MG/KG/D)
  2. THIAMAZOLE [Suspect]
     Dosage: 10 MG, BID
  3. THIAMAZOLE [Suspect]
     Dosage: SINGLE 15 MG BEDTIME DOSE
  4. THIAMAZOLE [Suspect]
     Dosage: 15 MG, BID
  5. DIPHENHYDRAMINE [Concomitant]
     Dosage: 20 MG, QD
  6. DIPHENHYDRAMINE [Concomitant]
     Dosage: 10 MG, QD

REACTIONS (9)
  - Anaphylactic reaction [Recovered/Resolved]
  - Type I hypersensitivity [Recovered/Resolved]
  - Rash [Recovered/Resolved]
  - Pruritus [Recovered/Resolved]
  - Urticaria [Recovered/Resolved]
  - Swollen tongue [Recovered/Resolved]
  - Pharyngeal oedema [Recovered/Resolved]
  - Angioedema [Recovered/Resolved]
  - Hyperthyroidism [Unknown]
